FAERS Safety Report 4441409-X (Version None)
Quarter: 2004Q3

REPORT INFORMATION
  Report Type: 
  Country: None (occurrence: None)
  Receive Date: 20040728
  Receipt Date: 20040427
  Transmission Date: 20050211
  Serious: No
  Sender: FDA-Public Use
  Company Number: USA040466135

PATIENT
  Age: 10 Year
  Sex: Male
  Weight: 33 kg

DRUGS (1)
  1. STRATTERA [Suspect]
     Dosage: 30 MG DAY
     Dates: start: 20040406

REACTIONS (4)
  - COUGH [None]
  - MYDRIASIS [None]
  - PYREXIA [None]
  - VIRAL INFECTION [None]
